FAERS Safety Report 4408208-6 (Version None)
Quarter: 2004Q3

REPORT INFORMATION
  Report Type: 
  Country: None (occurrence: None)
  Receive Date: 20040722
  Receipt Date: 20040713
  Transmission Date: 20050211
  Serious: Yes (Death, Other)
  Sender: FDA-Public Use
  Company Number: 2004223807CN

PATIENT
  Age: 31 Year
  Sex: Female

DRUGS (4)
  1. HEPARINISED SALINE INJECTION(HEPARIN SODIUM, SODIUM CHLORIDE) SOLUTION [Suspect]
     Indication: CEREBROVASCULAR STENOSIS
     Dosage: SEE IMAGE
     Route: 042
  2. ASPIRIN [Concomitant]
  3. NIMODIPINE (NIMODIPINE) [Concomitant]
  4. PROPOFOL [Concomitant]

REACTIONS (2)
  - POST PROCEDURAL COMPLICATION [None]
  - SUBARACHNOID HAEMORRHAGE [None]
